FAERS Safety Report 16918396 (Version 1)
Quarter: 2019Q4

REPORT INFORMATION
  Report Type: Report from Study
  Country: IT (occurrence: IT)
  Receive Date: 20191015
  Receipt Date: 20191015
  Transmission Date: 20200122
  Serious: Yes (Other)
  Sender: FDA-Public Use
  Company Number: IT-BRISTOL-MYERS SQUIBB COMPANY-BMS-2019-096101

PATIENT
  Age: 74 Year
  Sex: Female

DRUGS (1)
  1. WARFARIN SODIUM. [Suspect]
     Active Substance: WARFARIN SODIUM
     Indication: ATRIAL FIBRILLATION
     Dosage: 1 DOSAGE FORM, 1 DAY
     Route: 048
     Dates: start: 20170101, end: 20190812

REACTIONS (4)
  - Ecchymosis [Recovering/Resolving]
  - Facial bones fracture [Recovering/Resolving]
  - Injury [Recovering/Resolving]
  - Epistaxis [Recovering/Resolving]

NARRATIVE: CASE EVENT DATE: 20190811
